FAERS Safety Report 9719149 (Version 1)
Quarter: 2013Q4

REPORT INFORMATION
  Report Type: Spontaneous
  Country: US (occurrence: US)
  Receive Date: 20131127
  Receipt Date: 20131127
  Transmission Date: 20140711
  Serious: Yes (Other)
  Sender: FDA-Public Use
  Company Number: CHPA2013US017519

PATIENT
  Age: 21 Year
  Sex: Female

DRUGS (2)
  1. KROGER PLP [Suspect]
     Indication: SMOKING CESSATION THERAPY
     Dosage: 7 MG, QD
     Route: 062
     Dates: start: 20131118
  2. TEGRETOL [Concomitant]
     Indication: MUSCLE DISORDER
     Dosage: 2 DF, QD
     Route: 048
     Dates: end: 201311

REACTIONS (5)
  - Hallucination [Recovered/Resolved]
  - Chest pain [Recovering/Resolving]
  - Insomnia [Recovered/Resolved]
  - Abnormal dreams [Recovered/Resolved]
  - Inappropriate schedule of drug administration [Unknown]
